FAERS Safety Report 12331421 (Version 3)
Quarter: 2016Q4

REPORT INFORMATION
  Report Type: Spontaneous
  Country: US (occurrence: US)
  Receive Date: 20160504
  Receipt Date: 20161108
  Transmission Date: 20170207
  Serious: No
  Sender: FDA-Public Use
  Company Number: US-GLAXOSMITHKLINE-US2016055819

PATIENT
  Sex: Female

DRUGS (1)
  1. ADVAIR DISKUS [Suspect]
     Active Substance: FLUTICASONE PROPIONATE\SALMETEROL XINAFOATE
     Indication: PRODUCT USED FOR UNKNOWN INDICATION
     Dosage: 1 PUFF(S), BID
     Route: 055
     Dates: start: 2011

REACTIONS (8)
  - Treatment noncompliance [Unknown]
  - Inhalation therapy [Recovering/Resolving]
  - Product quality issue [Unknown]
  - Increased bronchial secretion [Recovering/Resolving]
  - Cough [Recovering/Resolving]
  - Drug ineffective [Recovering/Resolving]
  - Intentional product use issue [Unknown]
  - Dyspnoea [Recovering/Resolving]

NARRATIVE: CASE EVENT DATE: 2011
